FAERS Safety Report 5188330-X (Version None)
Quarter: 2006Q4

REPORT INFORMATION
  Report Type: 
  Country: None (occurrence: None)
  Receive Date: 20061221
  Receipt Date: 20061121
  Transmission Date: 20070319
  Serious: Yes (Hospitalization)
  Sender: FDA-Public Use
  Company Number: US-ELI_LILLY_AND_COMPANY-US200611004232

PATIENT
  Age: 77 Year
  Sex: Female

DRUGS (3)
  1. FORTEO [Suspect]
     Indication: OSTEOPOROSIS
     Dosage: UNK, UNK
     Dates: start: 20060701
  2. ATENOLOL [Concomitant]
  3. FOSAMAX ONCE WEEKLY [Concomitant]

REACTIONS (3)
  - FALL [None]
  - HIP FRACTURE [None]
  - PHARMACEUTICAL PRODUCT COMPLAINT [None]
